FAERS Safety Report 7006586-5 (Version None)
Quarter: 2010Q3

REPORT INFORMATION
  Report Type: 
  Country: None (occurrence: None)
  Receive Date: 20100921
  Receipt Date: 20100921
  Transmission Date: 20110219
  Serious: Yes (Death)
  Sender: FDA-Public Use
  Company Number: None

PATIENT
  Age: 21 Year
  Sex: Female
  Weight: 98 kg

DRUGS (18)
  1. CLOFARABINE 1 MG/ML UNKNOWN [Suspect]
     Indication: ACUTE LYMPHOCYTIC LEUKAEMIA RECURRENT
     Dosage: 52 MG/M2 -100 MG- PER PROTOCOL Q24H IV
     Route: 042
     Dates: start: 20100903, end: 20100906
  2. CALCIUM + VITAMIN D [Concomitant]
  3. CEFAZOLIN [Concomitant]
  4. CETIRIZINE HCL [Concomitant]
  5. DEX OPTH SOLN [Concomitant]
  6. NEXIUM [Concomitant]
  7. ADVAIR DISKUS 100/50 [Concomitant]
  8. LESSINA [Concomitant]
  9. ZOCOR [Concomitant]
  10. LANTUS [Concomitant]
  11. METFORMI N [Concomitant]
  12. MONTELUKAST [Concomitant]
  13. ONDANSETRON [Concomitant]
  14. SERTRALINE HYDROCHLORIDE [Concomitant]
  15. APAP TAB [Concomitant]
  16. OXYCODONE [Concomitant]
  17. ALBUTEROL [Concomitant]
  18. PROMETHAZINE [Concomitant]

REACTIONS (8)
  - CAPILLARY LEAK SYNDROME [None]
  - HEPATIC FAILURE [None]
  - HYPOTENSION [None]
  - MULTI-ORGAN FAILURE [None]
  - PYREXIA [None]
  - RENAL FAILURE [None]
  - RESPIRATORY DEPRESSION [None]
  - RESPIRATORY FAILURE [None]
